FAERS Safety Report 7561195-4 (Version None)
Quarter: 2011Q2

REPORT INFORMATION
  Report Type: 
  Country: None (occurrence: None)
  Receive Date: 20110621
  Receipt Date: 20100811
  Transmission Date: 20111010
  Serious: No
  Sender: FDA-Public Use
  Company Number: US-ASTRAZENECA-2008UW22181

PATIENT
  Age: 66 Year
  Sex: Male
  Weight: 87.5 kg

DRUGS (8)
  1. PULMICORT FLEXHALER [Suspect]
     Indication: EMPHYSEMA
     Dosage: 180MCG, 1 PUFF/BID
     Route: 055
  2. PULMICORT FLEXHALER [Suspect]
     Route: 055
     Dates: start: 20040101
  3. PULMICORT FLEXHALER [Suspect]
     Indication: BRONCHITIS
     Dosage: 180MCG, 1 PUFF/BID
     Route: 055
  4. PULMICORT FLEXHALER [Suspect]
     Route: 055
     Dates: start: 20040101
  5. ALBUTEROL SULFATE AUTOHALER [Concomitant]
  6. SPIRIVA [Concomitant]
  7. PULMICORT FLEXHALER [Suspect]
     Route: 055
     Dates: start: 20040101
  8. PULMICORT FLEXHALER [Suspect]
     Route: 055
     Dates: start: 20040101

REACTIONS (2)
  - DYSPNOEA [None]
  - DRUG INEFFECTIVE [None]
